FAERS Safety Report 6853691-X (Version None)
Quarter: 2010Q3

REPORT INFORMATION
  Report Type: 
  Country: None (occurrence: None)
  Receive Date: 20100717
  Receipt Date: 20071213
  Transmission Date: 20110219
  Serious: No
  Sender: FDA-Public Use
  Company Number: US-PFIZER INC-2007106109

PATIENT
  Sex: Male
  Weight: 90.909 kg

DRUGS (8)
  1. CHANTIX [Suspect]
     Indication: SMOKING CESSATION THERAPY
     Dates: start: 20071129
  2. OXYCONTIN [Concomitant]
  3. ATIVAN [Concomitant]
  4. PLAVIX [Concomitant]
  5. ALTACE [Concomitant]
  6. LOPRESSOR [Concomitant]
  7. VYTORIN [Concomitant]
  8. ALL OTHER THERAPEUTIC PRODUCTS [Concomitant]

REACTIONS (1)
  - SLEEP DISORDER [None]
